FAERS Safety Report 21732334 (Version 1)
Quarter: 2022Q4

REPORT INFORMATION
  Report Type: Spontaneous
  Country: US (occurrence: US)
  Receive Date: 20221215
  Receipt Date: 20221215
  Transmission Date: 20230113
  Serious: No
  Sender: FDA-Public Use
  Company Number: US-NOVEN PHARMACEUTICALS, INC.-2022-NOV-US000141

PATIENT
  Age: 13 Year
  Sex: Male

DRUGS (2)
  1. DAYTRANA [Suspect]
     Active Substance: METHYLPHENIDATE
     Indication: Attention deficit hyperactivity disorder
     Dosage: 30 MG/ 9 HOURS, UNKNOWN
     Route: 062
  2. DAYTRANA [Suspect]
     Active Substance: METHYLPHENIDATE
     Dosage: 10 MG/ 9 HOURS, UNKNOWN
     Route: 062
     Dates: start: 2021

REACTIONS (9)
  - Application site irritation [Unknown]
  - Application site pruritus [Unknown]
  - Application site erythema [Unknown]
  - Product administration error [Unknown]
  - Wrong technique in product usage process [Unknown]
  - Device adhesion issue [Not Recovered/Not Resolved]
  - Device difficult to use [Not Recovered/Not Resolved]
  - Device issue [Not Recovered/Not Resolved]
  - Device material issue [Not Recovered/Not Resolved]
